FAERS Safety Report 12496405 (Version 1)
Quarter: 2016Q2

REPORT INFORMATION
  Report Type: Spontaneous
  Country: US (occurrence: US)
  Receive Date: 20160624
  Receipt Date: 20160624
  Transmission Date: 20160815
  Serious: No
  Sender: FDA-Public Use
  Company Number: US-GLAXOSMITHKLINE-US2016GSK082928

PATIENT
  Sex: Female

DRUGS (6)
  1. CYMBALTA [Suspect]
     Active Substance: DULOXETINE HYDROCHLORIDE
  2. MORPHINE [Suspect]
     Active Substance: MORPHINE
  3. ALENDRONATE SODIUM. [Suspect]
     Active Substance: ALENDRONATE SODIUM
  4. IMITREX [Suspect]
     Active Substance: SUMATRIPTAN SUCCINATE
  5. DULOXETINE. [Suspect]
     Active Substance: DULOXETINE
  6. SUMATRIPTAN (SUMATRIPTAN SUCCINATE) SOLUTION FOR INJECTION IN PRE-FILL [Suspect]
     Active Substance: SUMATRIPTAN

REACTIONS (4)
  - Drug hypersensitivity [Unknown]
  - Abdominal discomfort [Unknown]
  - Pruritus [Unknown]
  - Abdominal pain [Unknown]
